FAERS Safety Report 9265831 (Version 2)
Quarter: 2013Q4

REPORT INFORMATION
  Report Type: Spontaneous
  Country: JP (occurrence: JP)
  Receive Date: 20130501
  Receipt Date: 20131015
  Transmission Date: 20140711
  Serious: Yes (Hospitalization)
  Sender: FDA-Public Use
  Company Number: JP-GLAXOSMITHKLINE-B0887209A

PATIENT
  Age: 74 Year
  Sex: Male

DRUGS (19)
  1. REQUIP [Suspect]
     Indication: PRODUCT USED FOR UNKNOWN INDICATION
     Route: 048
  2. REQUIP [Suspect]
     Indication: PRODUCT USED FOR UNKNOWN INDICATION
     Route: 048
  3. LEVODOPA [Suspect]
     Indication: PRODUCT USED FOR UNKNOWN INDICATION
     Route: 042
  4. LEVODOPA [Suspect]
     Indication: PRODUCT USED FOR UNKNOWN INDICATION
     Route: 042
  5. LEVODOPA [Suspect]
     Indication: PRODUCT USED FOR UNKNOWN INDICATION
     Route: 042
  6. LEVODOPA [Suspect]
     Indication: PRODUCT USED FOR UNKNOWN INDICATION
     Route: 042
  7. LEVODOPA BENSERAZIDE [Suspect]
     Indication: PRODUCT USED FOR UNKNOWN INDICATION
     Route: 048
  8. LEVODOPA BENSERAZIDE [Suspect]
     Indication: PRODUCT USED FOR UNKNOWN INDICATION
     Route: 048
  9. LEVODOPA BENSERAZIDE [Suspect]
     Indication: PRODUCT USED FOR UNKNOWN INDICATION
     Route: 048
  10. LEVODOPA BENSERAZIDE [Suspect]
     Indication: PRODUCT USED FOR UNKNOWN INDICATION
     Route: 048
  11. LEVODOPA BENSERAZIDE [Suspect]
     Indication: PRODUCT USED FOR UNKNOWN INDICATION
     Route: 048
  12. LEVODOPA BENSERAZIDE [Suspect]
     Indication: PRODUCT USED FOR UNKNOWN INDICATION
     Route: 048
  13. LEVODOPA BENSERAZIDE [Suspect]
     Indication: PRODUCT USED FOR UNKNOWN INDICATION
     Route: 048
  14. LEVODOPA BENSERAZIDE [Suspect]
     Indication: PRODUCT USED FOR UNKNOWN INDICATION
     Route: 048
  15. ENTACAPONE [Suspect]
     Indication: PRODUCT USED FOR UNKNOWN INDICATION
     Route: 048
  16. ENTACAPONE [Suspect]
     Indication: PRODUCT USED FOR UNKNOWN INDICATION
     Route: 048
  17. ENTACAPONE [Suspect]
     Indication: PRODUCT USED FOR UNKNOWN INDICATION
     Route: 048
  18. ENTACAPONE [Suspect]
     Indication: PRODUCT USED FOR UNKNOWN INDICATION
     Route: 048
  19. AMANTADINE HYDROCHLORIDE [Suspect]
     Indication: PRODUCT USED FOR UNKNOWN INDICATION
     Route: 048

REACTIONS (24)
  - Pneumonia aspiration [Recovering/Resolving]
  - Progressive supranuclear palsy [Unknown]
  - Cognitive disorder [Unknown]
  - Akinesia [Unknown]
  - Pseudobulbar palsy [Unknown]
  - Cerebellar atrophy [Unknown]
  - Glossoptosis [Unknown]
  - Oromandibular dystonia [Unknown]
  - Parkinsonism [Unknown]
  - Dystonia [Unknown]
  - Postural reflex impairment [Unknown]
  - Fall [Unknown]
  - Dysphagia [Unknown]
  - Dyslalia [Unknown]
  - Muscle rigidity [Unknown]
  - Resting tremor [Unknown]
  - Parkinsonism [Unknown]
  - Reflexes abnormal [Unknown]
  - Reflexes abnormal [Unknown]
  - Binocular eye movement disorder [Unknown]
  - Muscle contractions involuntary [Unknown]
  - Atrophy [Unknown]
  - Vascular insufficiency [Unknown]
  - Muscle contractions involuntary [Unknown]
